FAERS Safety Report 6091269-9 (Version None)
Quarter: 2009Q1

REPORT INFORMATION
  Report Type: 
  Country: None (occurrence: None)
  Receive Date: 20090225
  Receipt Date: 20090223
  Transmission Date: 20090719
  Serious: Yes (Other)
  Sender: FDA-Public Use
  Company Number: ES-BRISTOL-MYERS SQUIBB COMPANY-14517916

PATIENT
  Age: 39 Year
  Sex: Female

DRUGS (3)
  1. EFAVIRENZ [Suspect]
     Indication: HIV INFECTION
     Dates: start: 20030225, end: 20030620
  2. STAVUDINE [Suspect]
     Indication: HIV INFECTION
     Dates: start: 20030225, end: 20030620
  3. DIDANOSINE [Suspect]
     Indication: HIV INFECTION
     Dates: start: 20030225, end: 20030620

REACTIONS (2)
  - ASPARTATE AMINOTRANSFERASE INCREASED [None]
  - HYPERLACTACIDAEMIA [None]
